FAERS Safety Report 7306373-4 (Version None)
Quarter: 2011Q1

REPORT INFORMATION
  Report Type: 
  Country: None (occurrence: None)
  Receive Date: 20110222
  Receipt Date: 20101208
  Transmission Date: 20110831
  Serious: No
  Sender: FDA-Public Use
  Company Number: US-BRISTOL-MYERS SQUIBB COMPANY-15430051

PATIENT
  Sex: Male

DRUGS (1)
  1. AZACTAM [Suspect]

REACTIONS (1)
  - EXPIRED DRUG ADMINISTERED [None]
